FAERS Safety Report 5581066-2 (Version None)
Quarter: 2007Q4

REPORT INFORMATION
  Report Type: 
  Country: None (occurrence: None)
  Receive Date: 20071227
  Receipt Date: 20071212
  Transmission Date: 20080405
  Serious: Yes (Other)
  Sender: FDA-Public Use
  Company Number: E2090-00362-SPO-JP

PATIENT
  Age: 1 Year
  Sex: Male

DRUGS (4)
  1. ZONISAMIDE [Suspect]
     Dosage: ORAL
     Route: 048
  2. CLOBAZAM(CLOBAZAM) [Concomitant]
  3. POTASSIUM BROMIDE(POTASSIUM BROMIDE) [Concomitant]
  4. VITAMIN B PREPARATIONS(VITAMIN B) [Concomitant]

REACTIONS (11)
  - APLASIA PURE RED CELL [None]
  - GENE MUTATION [None]
  - GLUCOSE TOLERANCE IMPAIRED [None]
  - HAEMOLYTIC ANAEMIA [None]
  - HEPATIC FUNCTION ABNORMAL [None]
  - INFANTILE SPASMS [None]
  - MUSCLE SPASMS [None]
  - MUSCULOSKELETAL DISORDER [None]
  - NEUTROPENIA [None]
  - NORMOCHROMIC NORMOCYTIC ANAEMIA [None]
  - PANCREATIC INSUFFICIENCY [None]
